FAERS Safety Report 6147117-1 (Version None)
Quarter: 2009Q2

REPORT INFORMATION
  Report Type: 
  Country: None (occurrence: None)
  Receive Date: 20090403
  Receipt Date: 20090326
  Transmission Date: 20091009
  Serious: Yes (Hospitalization)
  Sender: FDA-Public Use
  Company Number: 2009AL001799

PATIENT
  Age: 28 Year
  Sex: Female

DRUGS (3)
  1. CARBAMAZEPINE [Suspect]
     Indication: LICHENOID KERATOSIS
  2. CLONAZEPAM [Concomitant]
  3. CHLORPROTHIXENE [Concomitant]

REACTIONS (11)
  - BLOOD CREATINE PHOSPHOKINASE INCREASED [None]
  - BLOOD CREATINE PHOSPHOKINASE MB INCREASED [None]
  - GAMMA-GLUTAMYLTRANSFERASE INCREASED [None]
  - LICHENOID KERATOSIS [None]
  - LIVER DISORDER [None]
  - LYMPHADENOPATHY [None]
  - PERIORBITAL OEDEMA [None]
  - PNEUMONIA [None]
  - RASH PRURITIC [None]
  - SPLENOMEGALY [None]
  - ULTRASOUND ABDOMEN ABNORMAL [None]
